FAERS Safety Report 8156235-8 (Version None)
Quarter: 2012Q1

REPORT INFORMATION
  Report Type: 
  Country: None (occurrence: None)
  Receive Date: 20120222
  Receipt Date: 20120216
  Transmission Date: 20120608
  Serious: Yes (Other)
  Sender: FDA-Public Use
  Company Number: US-PFIZER INC-2012043292

PATIENT
  Sex: Female

DRUGS (1)
  1. LO/OVRAL-28 [Suspect]
     Indication: OFF LABEL USE
     Dosage: UNK

REACTIONS (4)
  - INSOMNIA [None]
  - HAEMORRHAGE [None]
  - EMOTIONAL DISTRESS [None]
  - HYPERHIDROSIS [None]
